FAERS Safety Report 8056633-7 (Version None)
Quarter: 2012Q1

REPORT INFORMATION
  Report Type: 
  Country: None (occurrence: None)
  Receive Date: 20120119
  Receipt Date: 20120111
  Transmission Date: 20120608
  Serious: Yes (Hospitalization, Other)
  Sender: FDA-Public Use
  Company Number: CHPA2012US000978

PATIENT
  Age: 86 Year
  Sex: Female

DRUGS (1)
  1. EXCEDRIN EXTRA STRENGTH CAPLETS [Suspect]
     Indication: HEADACHE
     Dosage: 2 DF, PRN
     Route: 048

REACTIONS (5)
  - PNEUMONIA [None]
  - HYPERHIDROSIS [None]
  - DYSPHONIA [None]
  - FATIGUE [None]
  - DYSPNOEA [None]
